FAERS Safety Report 6845480-7 (Version None)
Quarter: 2010Q3

REPORT INFORMATION
  Report Type: 
  Country: None (occurrence: None)
  Receive Date: 20100715
  Receipt Date: 20070821
  Transmission Date: 20110219
  Serious: Yes (Other)
  Sender: FDA-Public Use
  Company Number: US-PFIZER INC-2007070599

PATIENT
  Sex: Female
  Weight: 90.909 kg

DRUGS (8)
  1. CHANTIX [Suspect]
     Indication: SMOKING CESSATION THERAPY
     Dates: start: 20070816, end: 20070820
  2. METFORMIN HCL [Concomitant]
  3. LASIX [Concomitant]
  4. POTASSIUM CHLORIDE [Concomitant]
  5. ALL OTHER THERAPEUTIC PRODUCTS [Concomitant]
  6. DILANTIN [Concomitant]
  7. PLAVIX [Concomitant]
  8. LORTAB [Concomitant]

REACTIONS (1)
  - BLOOD GLUCOSE INCREASED [None]
